FAERS Safety Report 10488642 (Version 1)
Quarter: 2014Q3

REPORT INFORMATION
  Report Type: Spontaneous
  Country: US (occurrence: None)
  Receive Date: 20140815
  Receipt Date: 20140815
  Transmission Date: 20150326
  Serious: Yes (Other)
  Sender: FDA-Public Use
  Company Number: ADR-2013-01661

PATIENT
  Age: 43 Year
  Sex: Female

DRUGS (2)
  1. BACLOFEN INTRATHECAL [Suspect]
     Active Substance: BACLOFEN
  2. DILAUDID [Suspect]
     Active Substance: HYDROMORPHONE HYDROCHLORIDE

REACTIONS (6)
  - Fall [None]
  - Implant site pain [None]
  - Pain [None]
  - Contusion [None]
  - Implant site warmth [None]
  - Pyrexia [None]

NARRATIVE: CASE EVENT DATE: 20130911
